FAERS Safety Report 24526901 (Version 1)
Quarter: 2024Q4

REPORT INFORMATION
  Report Type: Spontaneous
  Country: JP (occurrence: JP)
  Receive Date: 20241021
  Receipt Date: 20241021
  Transmission Date: 20250114
  Serious: Yes (Other)
  Sender: ORGANON
  Company Number: JP-ORGANON-O2410JPN001436

PATIENT
  Age: 56 Year
  Sex: Male

DRUGS (1)
  1. ALENDRONATE SODIUM [Suspect]
     Active Substance: ALENDRONATE SODIUM
     Dosage: 35 MILLIGRAM
     Route: 048

REACTIONS (1)
  - Metastases to bone [Unknown]
